FAERS Safety Report 8496699-3 (Version None)
Quarter: 2012Q3

REPORT INFORMATION
  Report Type: 
  Country: None (occurrence: None)
  Receive Date: 20120709
  Receipt Date: 20120702
  Transmission Date: 20120928
  Serious: Yes (Death)
  Sender: FDA-Public Use
  Company Number: ES-GENZYME-THYM-1003317

PATIENT
  Age: 5 Year
  Sex: Female
  Weight: 20 kg

DRUGS (4)
  1. THYMOGLOBULIN [Suspect]
     Indication: PROPHYLAXIS AGAINST TRANSPLANT REJECTION
     Dosage: 54 MG/DAY, QD
     Route: 042
     Dates: start: 20120504, end: 20120508
  2. FLUDARA [Suspect]
     Indication: BONE MARROW CONDITIONING REGIMEN
     Dosage: 25 MG, QD
     Route: 042
     Dates: start: 20120504, end: 20120507
  3. CYCLOSPORINE [Suspect]
     Indication: PROPHYLAXIS AGAINST TRANSPLANT REJECTION
     Dosage: UNK
     Route: 065
     Dates: start: 20120505, end: 20120621
  4. CYCLOPHOSPHAMIDE [Suspect]
     Indication: BONE MARROW CONDITIONING REGIMEN
     Dosage: 180 MG, QD
     Route: 065
     Dates: start: 20120504, end: 20120507

REACTIONS (2)
  - LYMPHOPROLIFERATIVE DISORDER [None]
  - MULTI-ORGAN FAILURE [None]
